FAERS Safety Report 21050036 (Version 1)
Quarter: 2022Q3

REPORT INFORMATION
  Report Type: Spontaneous
  Country: US (occurrence: US)
  Receive Date: 20220706
  Receipt Date: 20220706
  Transmission Date: 20221026
  Serious: Yes (Other)
  Sender: FDA-Public Use
  Company Number: US-MALLINCKRODT-T202202837

PATIENT
  Sex: Female

DRUGS (2)
  1. H.P. ACTHAR [Suspect]
     Active Substance: CORTICOTROPIN
     Indication: Rheumatoid arthritis
     Dosage: 80 UNITS, TWICE A WEEK
     Route: 058
     Dates: start: 20220504, end: 202205
  2. H.P. ACTHAR [Suspect]
     Active Substance: CORTICOTROPIN
     Indication: Rheumatoid factor
     Dosage: 80 UNITS (1 MILLILITER), TWICE A WEEK
     Route: 058
     Dates: start: 202205, end: 20220621

REACTIONS (10)
  - Angina pectoris [Unknown]
  - Myalgia [Unknown]
  - Pain [Unknown]
  - Feeling abnormal [Unknown]
  - Dizziness [Unknown]
  - Heart rate increased [Unknown]
  - Vomiting [Unknown]
  - Fatigue [Unknown]
  - Therapy non-responder [Not Recovered/Not Resolved]
  - Therapeutic response shortened [Not Recovered/Not Resolved]

NARRATIVE: CASE EVENT DATE: 20220101
